FAERS Safety Report 6252481-9 (Version None)
Quarter: 2009Q3

REPORT INFORMATION
  Report Type: 
  Country: None (occurrence: None)
  Receive Date: 20090701
  Receipt Date: 20090629
  Transmission Date: 20100115
  Serious: Yes (Hospitalization)
  Sender: FDA-Public Use
  Company Number: US-BRISTOL-MYERS SQUIBB COMPANY-14683395

PATIENT
  Age: 64 Year
  Sex: Female
  Weight: 79 kg

DRUGS (4)
  1. CARBOPLATIN [Suspect]
     Indication: NON-SMALL CELL LUNG CANCER
     Dates: start: 20090616, end: 20090616
  2. ERBITUX [Suspect]
     Indication: NON-SMALL CELL LUNG CANCER
     Dosage: INITIAL DOSE 09JUN09
     Dates: start: 20090616, end: 20090616
  3. TAXOL [Suspect]
     Indication: NON-SMALL CELL LUNG CANCER
     Dates: start: 20090616, end: 20090616
  4. RADIOTHERAPY [Suspect]
     Indication: NON-SMALL CELL LUNG CANCER
     Dosage: 1 DF= 1600 CGY (TOTAL DOSE TILL THE DATE OF 26JUN09)# OF FRACTIONS 8 AND # OF ELAPSED DAYS 11
     Dates: start: 20090609

REACTIONS (2)
  - DYSPNOEA [None]
  - PLEURITIC PAIN [None]
